FAERS Safety Report 20623373 (Version 2)
Quarter: 2022Q2

REPORT INFORMATION
  Report Type: Spontaneous
  Country: CZ (occurrence: CZ)
  Receive Date: 20220322
  Receipt Date: 20220406
  Transmission Date: 20220721
  Serious: Yes (Other)
  Sender: FDA-Public Use
  Company Number: CZ-NOVARTISPH-NVSC2022CZ065070

PATIENT
  Age: 89 Year
  Sex: Male

DRUGS (1)
  1. BEOVU [Suspect]
     Active Substance: BROLUCIZUMAB-DBLL
     Indication: Choroidal neovascularisation
     Dosage: UNK UNK, Q3MO
     Route: 065

REACTIONS (5)
  - Retinal vasculitis [Unknown]
  - Retinal vascular occlusion [Unknown]
  - Vitritis [Unknown]
  - Eye inflammation [Unknown]
  - Product use in unapproved indication [Unknown]
